FAERS Safety Report 22017342 (Version 1)
Quarter: 2023Q1

REPORT INFORMATION
  Report Type: Spontaneous
  Country: US (occurrence: US)
  Receive Date: 20230221
  Receipt Date: 20230221
  Transmission Date: 20230417
  Serious: Yes (Other)
  Sender: FDA-Public Use
  Company Number: US-AMERICAN REGENT INC-2023000388

PATIENT
  Age: 72 Year
  Sex: Male

DRUGS (10)
  1. EPINEPHRINE [Suspect]
     Active Substance: EPINEPHRINE
     Indication: Septic shock
     Dosage: TO 0.3 MICROGRAM PER KILOGRAM PER MINUTE
     Route: 065
  2. EPINEPHRINE [Suspect]
     Active Substance: EPINEPHRINE
     Indication: Pseudomonal bacteraemia
  3. VASOPRESSIN [Suspect]
     Active Substance: VASOPRESSIN
     Indication: Septic shock
     Dosage: 0.04 UNITS/MIN
     Route: 065
  4. VASOPRESSIN [Suspect]
     Active Substance: VASOPRESSIN
     Indication: Pseudomonal bacteraemia
  5. NOREPINEPHRINE [Suspect]
     Active Substance: NOREPINEPHRINE
     Indication: Septic shock
     Dosage: 0.3 MICROGRAM PER KILOGRAM PER MINUTE
     Route: 065
  6. NOREPINEPHRINE [Suspect]
     Active Substance: NOREPINEPHRINE
     Indication: Pseudomonal bacteraemia
  7. ANGIOTENSIN II [Suspect]
     Active Substance: ANGIOTENSIN II
     Indication: Septic shock
     Dosage: BETWEEN 10-40 NG/KG/MIN
     Route: 065
  8. ANGIOTENSIN II [Suspect]
     Active Substance: ANGIOTENSIN II
     Indication: Pseudomonal bacteraemia
  9. DOBUTAMINE [Suspect]
     Active Substance: DOBUTAMINE HYDROCHLORIDE
     Indication: Septic shock
     Dosage: AS HIGH AS 12.5 MCG/KG/MIN FOR 47 HOURS BEFORE B12 ADMINISTRATION
     Route: 065
  10. DOBUTAMINE [Suspect]
     Active Substance: DOBUTAMINE HYDROCHLORIDE
     Indication: Pseudomonal bacteraemia

REACTIONS (2)
  - Drug ineffective [Recovering/Resolving]
  - Septic shock [Recovering/Resolving]
